FAERS Safety Report 9307801 (Version 2)
Quarter: 2013Q2

REPORT INFORMATION
  Report Type: Spontaneous
  Country: US (occurrence: US)
  Receive Date: 20130524
  Receipt Date: 20130627
  Transmission Date: 20140414
  Serious: Yes (Other)
  Sender: FDA-Public Use
  Company Number: US-PFIZER INC-2013156368

PATIENT
  Age: 62 Year
  Sex: Male
  Weight: 92.52 kg

DRUGS (3)
  1. PRISTIQ [Suspect]
     Indication: POST STROKE DEPRESSION
     Dosage: 50 MG, DAILY
     Route: 048
     Dates: start: 20130509
  2. GLIMEPIRIDE [Concomitant]
     Indication: DIABETES MELLITUS
     Dosage: 4 MG, 1X/DAY
  3. METFORMIN [Concomitant]
     Indication: DIABETES MELLITUS
     Dosage: 1000 MG, 2X/DAY

REACTIONS (1)
  - Hypoglycaemia [Recovered/Resolved]
